FAERS Safety Report 5263058-6 (Version None)
Quarter: 2007Q1

REPORT INFORMATION
  Report Type: 
  Country: None (occurrence: None)
  Receive Date: 20070312
  Receipt Date: 20070212
  Transmission Date: 20070707
  Serious: Yes (Other)
  Sender: FDA-Public Use
  Company Number: US-PFIZER INC-2007017135

PATIENT

DRUGS (2)
  1. XALATAN [Suspect]
  2. METHOTREXATE [Concomitant]

REACTIONS (2)
  - EYE SWELLING [None]
  - SWELLING FACE [None]
